FAERS Safety Report 7619554-7 (Version None)
Quarter: 2011Q3

REPORT INFORMATION
  Report Type: 
  Country: None (occurrence: None)
  Receive Date: 20110719
  Receipt Date: 20110714
  Transmission Date: 20111222
  Serious: Yes (Other)
  Sender: FDA-Public Use
  Company Number: DE-AMGEN-DEUSP2011034658

PATIENT
  Age: 17 Year
  Sex: Male

DRUGS (1)
  1. ARANESP [Suspect]
     Indication: NEPHROGENIC ANAEMIA
     Dosage: 30 A?G, QWK
     Route: 058
     Dates: start: 20100122

REACTIONS (5)
  - HYPERSENSITIVITY [None]
  - COUGH [None]
  - OROPHARYNGEAL PAIN [None]
  - LOCAL REACTION [None]
  - SWELLING FACE [None]
